FAERS Safety Report 9442948 (Version 2)
Quarter: 2013Q4

REPORT INFORMATION
  Report Type: Spontaneous
  Country: GB (occurrence: GB)
  Receive Date: 20130806
  Receipt Date: 20131108
  Transmission Date: 20140711
  Serious: Yes (Other)
  Sender: FDA-Public Use
  Company Number: GB-JNJFOC-20130718968

PATIENT
  Sex: Female

DRUGS (2)
  1. STELARA [Suspect]
     Indication: PSORIASIS
     Route: 058
  2. CITALOPRAM [Concomitant]
     Route: 065

REACTIONS (2)
  - Inappropriate schedule of drug administration [Unknown]
  - Psoriasis [Recovering/Resolving]
